FAERS Safety Report 7903053-9 (Version None)
Quarter: 2011Q4

REPORT INFORMATION
  Report Type: 
  Country: None (occurrence: None)
  Receive Date: 20111104
  Receipt Date: 20111021
  Transmission Date: 20120403
  Serious: Yes (Other)
  Sender: FDA-Public Use
  Company Number: 2011AM005585

PATIENT
  Age: 70 Year
  Sex: Female
  Weight: 70.3075 kg

DRUGS (9)
  1. SITAGLIPTIN [Concomitant]
  2. METOPROLOL [Concomitant]
  3. LANTUS [Concomitant]
  4. LEVOXYL [Concomitant]
  5. SYMLINPEN 60 (PRAMLINTIDE ACETATE) PEN-INJECTOR (1.0 MG/ML) [Suspect]
     Indication: TYPE 2 DIABETES MELLITUS
     Dosage: 30 MCG;TID;SC. 60 MCG;TID;SC, 15 MCG;TID;SC
     Route: 058
     Dates: start: 20111020, end: 20111020
  6. SYMLINPEN 60 (PRAMLINTIDE ACETATE) PEN-INJECTOR (1.0 MG/ML) [Suspect]
     Indication: TYPE 2 DIABETES MELLITUS
     Dosage: 30 MCG;TID;SC. 60 MCG;TID;SC, 15 MCG;TID;SC
     Route: 058
     Dates: start: 20111021
  7. SYMLINPEN 60 (PRAMLINTIDE ACETATE) PEN-INJECTOR (1.0 MG/ML) [Suspect]
     Indication: TYPE 2 DIABETES MELLITUS
     Dosage: 30 MCG;TID;SC. 60 MCG;TID;SC, 15 MCG;TID;SC
     Route: 058
     Dates: start: 20111018, end: 20111020
  8. ANTIHYPERTENSIVES [Concomitant]
  9. INSULIN [Concomitant]

REACTIONS (3)
  - CHEST DISCOMFORT [None]
  - BLOOD GLUCOSE INCREASED [None]
  - HEART RATE INCREASED [None]
